FAERS Safety Report 17984810 (Version 2)
Quarter: 2020Q3

REPORT INFORMATION
  Report Type: Spontaneous
  Country: US (occurrence: US)
  Receive Date: 20200706
  Receipt Date: 20200825
  Transmission Date: 20201103
  Serious: Yes (Hospitalization)
  Sender: FDA-Public Use
  Company Number: US-VERTEX PHARMACEUTICALS-2020-012309

PATIENT
  Age: 9 Year
  Sex: Male

DRUGS (7)
  1. SYMDEKO [Suspect]
     Active Substance: IVACAFTOR\TEZACAFTOR
     Indication: CYSTIC FIBROSIS
     Dosage: 1 TAB (50 MG TEZACAFTOR/75 MG IVACAFTOR) AM; 1 TAB (75 MG IVACAFTOR) PM
     Route: 048
     Dates: start: 20191121
  2. PULMOZYME [Concomitant]
     Active Substance: DORNASE ALFA
  3. CEFDINIR. [Concomitant]
     Active Substance: CEFDINIR
  4. ZENPEP [Concomitant]
     Active Substance: PANCRELIPASE AMYLASE\PANCRELIPASE LIPASE\PANCRELIPASE PROTEASE
  5. CAYSTON [Concomitant]
     Active Substance: AZTREONAM
  6. ALTERRA [Concomitant]
  7. VITAMIN D [COLECALCIFEROL] [Concomitant]
     Active Substance: CHOLECALCIFEROL
     Dosage: 5000

REACTIONS (1)
  - Distal intestinal obstruction syndrome [Recovered/Resolved]

NARRATIVE: CASE EVENT DATE: 20200601
